FAERS Safety Report 6640505-6 (Version None)
Quarter: 2010Q1

REPORT INFORMATION
  Report Type: 
  Country: None (occurrence: None)
  Receive Date: 20100318
  Receipt Date: 20100309
  Transmission Date: 20100710
  Serious: Yes (Death)
  Sender: FDA-Public Use
  Company Number: GXKR2010FR02777

PATIENT
  Age: 96 Year
  Sex: Female

DRUGS (6)
  1. DOXORUBICIN (NGX) [Suspect]
     Indication: B-CELL LYMPHOMA
     Dosage: 25 MG/M2
     Route: 065
  2. VINCRISTINE (NGX) [Suspect]
     Indication: B-CELL LYMPHOMA
     Dosage: 1 MG/M2
     Route: 065
  3. PREDNISONE TAB [Suspect]
     Indication: B-CELL LYMPHOMA
     Dosage: 40 MG/M2
     Route: 065
  4. CYCLOPHOSPHAMIDE [Suspect]
     Indication: B-CELL LYMPHOMA
     Dosage: 400 MG/M2
     Route: 065
  5. RITUXIMAB [Suspect]
     Indication: B-CELL LYMPHOMA
     Dosage: 375 MG/M2
     Route: 065
  6. PEGFILGRASTIM [Concomitant]
     Indication: PROPHYLAXIS

REACTIONS (5)
  - BEDRIDDEN [None]
  - INFUSION SITE EXTRAVASATION [None]
  - LUNG DISORDER [None]
  - MYOCARDIAL INFARCTION [None]
  - PAROTITIS [None]
